FAERS Safety Report 5909489-X (Version None)
Quarter: 2008Q4

REPORT INFORMATION
  Report Type: 
  Country: None (occurrence: None)
  Receive Date: 20081002
  Receipt Date: 20080924
  Transmission Date: 20090506
  Serious: Yes (Hospitalization)
  Sender: FDA-Public Use
  Company Number: 6046035

PATIENT
  Age: 2 Year
  Sex: Male

DRUGS (1)
  1. CARDENSIEL 1.25 MG (TABLET) (BISOPROLOL FUMARATE) [Suspect]
     Indication: PROPHYLAXIS
     Dosage: 1.25 MG (1.25 MG, 1 D) ORAL
     Route: 048
     Dates: start: 20080919

REACTIONS (2)
  - BALANCE DISORDER [None]
  - FALL [None]
